FAERS Safety Report 9628383 (Version 2)
Quarter: 2013Q4

REPORT INFORMATION
  Report Type: Report from Study
  Country: US (occurrence: US)
  Receive Date: 20131017
  Receipt Date: 20131017
  Transmission Date: 20140711
  Serious: Yes (Other)
  Sender: FDA-Public Use
  Company Number: US-ROCHE-1287251

PATIENT
  Sex: Female

DRUGS (24)
  1. HERCEPTIN [Suspect]
     Indication: HER-2 POSITIVE BREAST CANCER
     Dosage: 4 MG/KG: LOADING DOSE
     Route: 065
     Dates: start: 20120510, end: 20130717
  2. XELODA [Suspect]
     Indication: PRODUCT USED FOR UNKNOWN INDICATION
     Dosage: 14 DAYS ON 7 DAYS OFF
     Route: 048
     Dates: start: 20120510, end: 20130717
  3. KADCYLA [Suspect]
     Indication: BREAST CANCER FEMALE
     Dosage: 8 CYCLES
     Route: 065
     Dates: start: 20130718, end: 20131008
  4. ADVAIR DISKUS [Concomitant]
     Dosage: 250- 50 MCG/ DOSE
     Route: 050
  5. DEXAMETHASONE [Concomitant]
     Route: 065
  6. EMLA [Concomitant]
     Route: 061
  7. HYDROCODONE/ACETAMINOPHEN [Concomitant]
     Dosage: 5-500 MG
     Route: 065
  8. HYDROCORTISONE [Concomitant]
     Route: 065
  9. HYDROXYCHLOROQUINE [Concomitant]
     Route: 065
  10. LEVETIRACETAM [Concomitant]
     Route: 065
  11. LISINOPRIL [Concomitant]
     Route: 065
  12. LOMOTIL (UNITED STATES) [Concomitant]
     Dosage: 2.5-0.025 MG
     Route: 065
  13. LORAZEPAM [Concomitant]
     Route: 065
  14. METFORMIN [Concomitant]
     Route: 065
  15. MS CONTIN [Concomitant]
     Route: 065
  16. PROAIR (UNITED STATES) [Concomitant]
     Route: 050
  17. PROCHLORPERAZINE MALEATE [Concomitant]
     Route: 065
  18. RESTORIL (UNITED STATES) [Concomitant]
     Route: 065
  19. DECADRON [Concomitant]
     Dosage: 4 MILLIONS
     Route: 065
  20. SINGULAIR [Concomitant]
     Route: 065
  21. TEMAZEPAM CAPSULES [Concomitant]
     Route: 065
  22. VENLAFAXINE ER [Concomitant]
     Route: 065
  23. ZITHROMAX Z-PAK [Concomitant]
     Route: 065
  24. ZOFRAN [Concomitant]
     Route: 065

REACTIONS (4)
  - Disease progression [Unknown]
  - Headache [Not Recovered/Not Resolved]
  - Hypoaesthesia [Not Recovered/Not Resolved]
  - Cough [Unknown]
